FAERS Safety Report 6557523-9 (Version None)
Quarter: 2010Q1

REPORT INFORMATION
  Report Type: 
  Country: None (occurrence: None)
  Receive Date: 20100129
  Receipt Date: 20100125
  Transmission Date: 20100710
  Serious: Yes (Death)
  Sender: FDA-Public Use
  Company Number: FR-BRISTOL-MYERS SQUIBB COMPANY-14950117

PATIENT
  Age: 81 Year
  Sex: Female

DRUGS (12)
  1. CAPTEA TABS [Suspect]
     Indication: HYPERTENSION
     Route: 048
  2. GLUCOPHAGE [Suspect]
     Route: 048
  3. POTASSIUM CHLORIDE [Suspect]
     Dosage: DIFFU K;INJECTION
     Route: 048
  4. INFLUENZA VACCINE [Suspect]
     Indication: INFLUENZA IMMUNISATION
     Route: 030
     Dates: start: 20100112, end: 20100112
  5. LERCAN [Suspect]
     Dosage: FILM COATED TABS
     Route: 048
  6. VASTAREL [Suspect]
     Route: 048
  7. TRIVASTAL [Suspect]
     Dosage: TABS
     Route: 048
  8. MODOPAR [Suspect]
     Route: 048
  9. LEVEMIR [Suspect]
     Dosage: 1 DF - 100 UNITS;INJECTION
     Route: 058
  10. CLOPIXOL [Suspect]
     Route: 048
  11. INSULIN ACTRAPID [Suspect]
     Dosage: INSULIN ACTRAPID ^NOVO NORDISK^
     Route: 058
  12. VAXIGRIP [Concomitant]
     Dates: start: 20091014

REACTIONS (1)
  - SUDDEN DEATH [None]
